FAERS Safety Report 7658089-2 (Version None)
Quarter: 2011Q3

REPORT INFORMATION
  Report Type: 
  Country: None (occurrence: None)
  Receive Date: 20110805
  Receipt Date: 20110801
  Transmission Date: 20111222
  Serious: Yes (Other)
  Sender: FDA-Public Use
  Company Number: US-BAYER-2011-067976

PATIENT
  Sex: Female

DRUGS (2)
  1. YASMIN [Suspect]
     Dosage: UNK
     Dates: start: 20050101
  2. DROSPIRENONE AND ETHINYL ESTRADIOL [Suspect]
     Dosage: UNK
     Dates: start: 20090101, end: 20100615

REACTIONS (6)
  - INJURY [None]
  - ABDOMINAL PAIN [None]
  - PULMONARY EMBOLISM [None]
  - ABDOMINAL PAIN UPPER [None]
  - ANXIETY [None]
  - PAIN [None]
